FAERS Safety Report 4401804-1 (Version None)
Quarter: 2004Q3

REPORT INFORMATION
  Report Type: 
  Country: None (occurrence: None)
  Receive Date: 20040720
  Receipt Date: 20040617
  Transmission Date: 20050211
  Serious: Yes (Other)
  Sender: FDA-Public Use
  Company Number: US-ROCHE-371553

PATIENT
  Age: 16 Year
  Sex: Female
  Weight: 49.9 kg

DRUGS (1)
  1. ACCUTANE [Suspect]
     Route: 048
     Dates: start: 20030718, end: 20031128

REACTIONS (2)
  - LACERATION [None]
  - SUICIDE ATTEMPT [None]
